FAERS Safety Report 25202684 (Version 3)
Quarter: 2025Q2

REPORT INFORMATION
  Report Type: Spontaneous
  Country: JP (occurrence: JP)
  Receive Date: 20250416
  Receipt Date: 20250604
  Transmission Date: 20250716
  Serious: Yes (Other)
  Sender: ABBVIE
  Company Number: JP-ABBVIE-6226177

PATIENT
  Age: 70 Year
  Sex: Female

DRUGS (1)
  1. RINVOQ [Suspect]
     Active Substance: UPADACITINIB
     Indication: Rheumatoid arthritis
     Route: 048

REACTIONS (2)
  - Fracture [Unknown]
  - Fall [Unknown]

NARRATIVE: CASE EVENT DATE: 20250110
